FAERS Safety Report 8262375-5 (Version None)
Quarter: 2012Q1

REPORT INFORMATION
  Report Type: 
  Country: None (occurrence: None)
  Receive Date: 20120327
  Receipt Date: 20090529
  Transmission Date: 20120608
  Serious: Yes (Life-Threatening, Hospitalization)
  Sender: FDA-Public Use
  Company Number: PHHY2009US10777

PATIENT
  Age: 49 Year
  Sex: Male

DRUGS (7)
  1. IRON SUPPLEMENTS (NO INGREDIENTS/SUBSTANCES) [Concomitant]
  2. COLACE (DOCUSATE SODIUM) [Concomitant]
  3. ZOCOR [Concomitant]
  4. GLEEVEC [Suspect]
     Indication: MALIGNANT SOFT TISSUE NEOPLASM
     Dosage: 400 MG DAILY, ORAL
     Route: 048
     Dates: end: 20081218
  5. PRILOSEC [Concomitant]
  6. PERCOCET [Concomitant]
  7. PROZAC [Concomitant]

REACTIONS (9)
  - ERYTHEMA [None]
  - ABDOMINAL ABSCESS [None]
  - SWELLING [None]
  - PYREXIA [None]
  - HAEMOGLOBIN DECREASED [None]
  - ABDOMINAL PAIN [None]
  - HAEMATOCRIT DECREASED [None]
  - INCISION SITE PAIN [None]
  - CHILLS [None]
